FAERS Safety Report 8762700 (Version 1)
Quarter: 2012Q4

REPORT INFORMATION
  Report Type: 
  Country: JP (occurrence: JP)
  Receive Date: 20120831
  Receipt Date: 20120831
  Transmission Date: 20130627
  Serious: Yes (Other)
  Sender: FDA-Public Use
  Company Number: JP-TEVA-356231ISR

PATIENT
  Age: 59 Year
  Sex: Male

DRUGS (2)
  1. BICALUTAMIDE [Suspect]
     Indication: PROSTATE CANCER
     Dosage: 80mg daily
     Route: 065
  2. LEUPRORELIN [Concomitant]
     Indication: PROSTATE CANCER
     Dosage: 11.25mg
     Route: 065

REACTIONS (2)
  - Photosensitivity reaction [Recovering/Resolving]
  - Rash [Recovering/Resolving]
